FAERS Safety Report 6965236-4 (Version None)
Quarter: 2010Q3

REPORT INFORMATION
  Report Type: 
  Country: None (occurrence: None)
  Receive Date: 20100903
  Receipt Date: 20100830
  Transmission Date: 20110219
  Serious: Yes (Death, Hospitalization, Other)
  Sender: FDA-Public Use
  Company Number: PHHO2010BR10781

PATIENT
  Sex: Male

DRUGS (5)
  1. CYCLOSPORINE [Suspect]
     Indication: RENAL TRANSPLANT
     Dosage: 100 MG DAILY
     Route: 048
     Dates: start: 20051001, end: 20100714
  2. CYCLOSPORINE [Suspect]
     Dosage: 50 MG / DAY
     Route: 048
     Dates: start: 20100715
  3. MYCOPHENOLATE MOFETIL [Suspect]
     Indication: RENAL TRANSPLANT
     Dosage: UNK
     Dates: start: 20091204, end: 20100706
  4. PREDNISONE [Suspect]
     Indication: RENAL TRANSPLANT
     Dosage: 5 MG
     Route: 048
     Dates: start: 20091204
  5. PREDNISONE [Suspect]
     Dosage: 20 MG
     Route: 048
     Dates: start: 20100706

REACTIONS (20)
  - ABDOMINAL PAIN [None]
  - ANAEMIA [None]
  - B-CELL LYMPHOMA [None]
  - BACK PAIN [None]
  - CONGENITAL CYSTIC KIDNEY DISEASE [None]
  - DYSPNOEA [None]
  - ECCHYMOSIS [None]
  - FEBRILE NEUTROPENIA [None]
  - HAEMODYNAMIC TEST [None]
  - KIDNEY ENLARGEMENT [None]
  - KLEBSIELLA TEST POSITIVE [None]
  - LYMPHOCYTE MORPHOLOGY ABNORMAL [None]
  - PETECHIAE [None]
  - POIKILOCYTOSIS [None]
  - PYREXIA [None]
  - RENAL CYST INFECTION [None]
  - SEPTIC SHOCK [None]
  - THROMBOCYTOPENIA [None]
  - URINARY TRACT INFECTION [None]
  - WHITE BLOOD CELL COUNT DECREASED [None]
